FAERS Safety Report 24754945 (Version 1)
Quarter: 2024Q4

REPORT INFORMATION
  Report Type: Report from Study
  Country: DE (occurrence: DE)
  Receive Date: 20241219
  Receipt Date: 20241219
  Transmission Date: 20250115
  Serious: Yes (Other)
  Sender: ALEXION PHARMACEUTICALS
  Company Number: DE-ASTRAZENECA-202412GLO013377DE

PATIENT
  Age: 65 Year
  Weight: 60 kg

DRUGS (4)
  1. DURVALUMAB [Suspect]
     Active Substance: DURVALUMAB
     Indication: Hepatobiliary cancer
     Dosage: 1180 MILLIGRAM, SINGLE
  2. DURVALUMAB [Suspect]
     Active Substance: DURVALUMAB
     Dosage: 1180 MILLIGRAM, SINGLE
     Route: 042
  3. DURVALUMAB [Suspect]
     Active Substance: DURVALUMAB
     Dosage: 1180 MILLIGRAM, SINGLE
  4. DURVALUMAB [Suspect]
     Active Substance: DURVALUMAB
     Dosage: 1180 MILLIGRAM, SINGLE
     Route: 042

REACTIONS (1)
  - Leukopenia [Recovered/Resolved]
